FAERS Safety Report 23130770 (Version 1)
Quarter: 2023Q4

REPORT INFORMATION
  Report Type: Spontaneous
  Country: CN (occurrence: CN)
  Receive Date: 20231031
  Receipt Date: 20231031
  Transmission Date: 20240110
  Serious: Yes (Other)
  Sender: FDA-Public Use
  Company Number: None

PATIENT
  Age: 68 Year
  Sex: Male
  Weight: 55 kg

DRUGS (3)
  1. MANNITOL [Suspect]
     Active Substance: MANNITOL
     Indication: Reduction of increased intracranial pressure
     Dosage: 100 ML (MILLILITRE), ONCE DAILY (DOSAGE FORM: INJECTION)
     Route: 041
     Dates: start: 20231007, end: 20231016
  2. DESLORATADINE [Suspect]
     Active Substance: DESLORATADINE
     Indication: Rash
     Dosage: 5 MG (MILLIGRAM)
     Route: 048
     Dates: start: 20231015
  3. DESLORATADINE [Suspect]
     Active Substance: DESLORATADINE
     Indication: Pruritus

REACTIONS (3)
  - Rash [Recovered/Resolved]
  - Pruritus [Recovering/Resolving]
  - Chills [Unknown]

NARRATIVE: CASE EVENT DATE: 20231015
